FAERS Safety Report 7176802-8 (Version None)
Quarter: 2010Q4

REPORT INFORMATION
  Report Type: 
  Country: None (occurrence: None)
  Receive Date: 20101207
  Receipt Date: 20101123
  Transmission Date: 20110411
  Serious: Yes (Disabling, Other)
  Sender: FDA-Public Use
  Company Number: ACO_20594_2010

PATIENT
  Age: 65 Year
  Sex: Male

DRUGS (1)
  1. AMPYRA [Suspect]
     Indication: PRODUCT USED FOR UNKNOWN INDICATION
     Dosage: 10 MG, BID, ORAL
     Route: 048
     Dates: start: 20101119, end: 20101122

REACTIONS (2)
  - ABASIA [None]
  - MUSCULOSKELETAL STIFFNESS [None]
